FAERS Safety Report 11624237 (Version 1)
Quarter: 2015Q4

REPORT INFORMATION
  Report Type: Spontaneous
  Country: US (occurrence: US)
  Receive Date: 20151013
  Receipt Date: 20151013
  Transmission Date: 20160304
  Serious: No
  Sender: FDA-Public Use
  Company Number: US-JNJFOC-20150914154

PATIENT
  Age: 3 Year
  Sex: Female
  Weight: 15.42 kg

DRUGS (4)
  1. CHILDRENS BENADRYL ALLERGY [Suspect]
     Active Substance: DIPHENHYDRAMINE HYDROCHLORIDE
     Indication: MULTIPLE ALLERGIES
     Dosage: 1 TEASPOON, MORNING, FOR 3 WEEKS
     Route: 048
  2. CHILDRENS ZYRTEC ALLERGY [Suspect]
     Active Substance: CETIRIZINE HYDROCHLORIDE
     Route: 048
  3. ALBUTEROL INHALERS [Concomitant]
     Indication: ASTHMA
     Route: 065
  4. CHILDRENS ZYRTEC ALLERGY [Suspect]
     Active Substance: CETIRIZINE HYDROCHLORIDE
     Indication: MULTIPLE ALLERGIES
     Dosage: 1 TEASPOON, AT NIGHT
     Route: 048
     Dates: end: 20150915

REACTIONS (4)
  - Agitation [Unknown]
  - Abnormal behaviour [Unknown]
  - Anger [Unknown]
  - Insomnia [Unknown]
